FAERS Safety Report 23952295 (Version 1)
Quarter: 2024Q2

REPORT INFORMATION
  Report Type: Spontaneous
  Country: US (occurrence: US)
  Receive Date: 20240607
  Receipt Date: 20240607
  Transmission Date: 20240715
  Serious: No
  Sender: FDA-Public Use
  Company Number: US-AMGEN-USASP2024105246

PATIENT
  Sex: Male

DRUGS (20)
  1. TAVNEOS [Suspect]
     Active Substance: AVACOPAN
     Indication: Vasculitis
     Dosage: 30 MILLIGRAM, QD
     Route: 048
     Dates: start: 202402, end: 2024
  2. TAVNEOS [Suspect]
     Active Substance: AVACOPAN
     Dosage: 10 MILLIGRAM, BID
     Route: 048
     Dates: start: 20240517
  3. ALBUTEROL [Concomitant]
     Active Substance: ALBUTEROL
     Dosage: 90 MICROGRAM
     Route: 065
  4. ALBUTEROL [Concomitant]
     Active Substance: ALBUTEROL
     Dosage: UNK 3MG/3ML 9 NEBULIZER AS NEEDED FOR WHEEZING)
     Route: 065
  5. BUDESONIDE [Concomitant]
     Active Substance: BUDESONIDE
     Dosage: 80 MICROGRAM
     Route: 065
  6. BUDESONIDE [Concomitant]
     Active Substance: BUDESONIDE
     Dosage: 0.5 MICROGRAM, BID (2ML SUSPENSION; ONE VIAL TWICE DAILY)
     Route: 065
  7. ALENDRONATE [Concomitant]
     Active Substance: ALENDRONATE SODIUM
     Dosage: 70 MILLIGRAM, QWK (70MG TABLETS BY MOUTH ONCE WEEKLY )
     Route: 048
  8. AZATHIOPRINE [Concomitant]
     Active Substance: AZATHIOPRINE
     Dosage: 50 MILLIGRAM, QD (2 TABLET^S BY MOUTH DAILY )
     Route: 048
  9. BUMETANIDE [Concomitant]
     Active Substance: BUMETANIDE
     Dosage: 2 MILLIGRAM, BID (1 TABLET TWICE DAILY BY MOUTH FOR 90 DAYS, REPORTER DOES NOT KNOW WHERE THE PATIEN
     Route: 048
  10. CARVEDILOL [Concomitant]
     Active Substance: CARVEDILOL
     Dosage: 6.25 MILLIGRAM, BID (1 TABLET BY MOUTH FOR 90 DAYS)
     Route: 048
  11. COBALAMIN [Concomitant]
     Active Substance: COBALAMIN
     Dosage: 1000 MICROGRAM PER MILLIGRAM, QMO (ONCE MONTHLY )
     Route: 065
  12. HYDRALAZINE [Concomitant]
     Active Substance: HYDRALAZINE HYDROCHLORIDE
     Dosage: 10 MILLIGRAM, Q6H (10MG 1 TABLET EVERY 6 HOURS BY MOUTH )
     Route: 048
  13. HYDROXYZINE HYDROCHLORIDE [Concomitant]
     Active Substance: HYDROXYZINE HYDROCHLORIDE
     Dosage: 25 MILLIGRAM, Q8H (1 1/2 TABLETS BY MOUTH EVERY 8 HOURS)
     Route: 048
  14. IPRATROPIUM [Concomitant]
     Active Substance: IPRATROPIUM
     Dosage: 0.5 MILLIGRAM
     Route: 065
  15. LOSARTAN [Concomitant]
     Active Substance: LOSARTAN
     Dosage: 50 MILLIGRAM, QD ((1 TABLET BY MOUTH ONCE DAILY FOR 90 DAY)
     Route: 048
  16. MIRTAZAPINE [Concomitant]
     Active Substance: MIRTAZAPINE
     Dosage: 7.5 MILLIGRAM (1 TABLET BY MOUTH AT NIGHT FOR NERVES )
     Route: 048
  17. OMEPRAZOLE [Concomitant]
     Active Substance: DONEPEZIL HYDROCHLORIDE\OMEPRAZOLE\OMEPRAZOLE MAGNESIUM
     Dosage: 20 MILLIGRAM, QD (1 CAPSULE BY MOUTH DAILY)
     Route: 048
  18. FISH OIL [Concomitant]
     Active Substance: FISH OIL
     Dosage: UNK
     Route: 065
  19. PREDNISONE [Concomitant]
     Active Substance: PREDNISONE
     Dosage: UNK
     Route: 065
  20. ZYRTEC [Concomitant]
     Active Substance: CETIRIZINE HYDROCHLORIDE
     Dosage: 10 MILLIGRAM, QD (10 MG BY MOUTH DAILY )
     Route: 048

REACTIONS (4)
  - Diarrhoea [Unknown]
  - Nausea [Unknown]
  - Vomiting [Unknown]
  - Off label use [Unknown]

NARRATIVE: CASE EVENT DATE: 20240101
